FAERS Safety Report 20743118 (Version 2)
Quarter: 2025Q2

REPORT INFORMATION
  Report Type: Spontaneous
  Country: US (occurrence: US)
  Receive Date: 20220425
  Receipt Date: 20250621
  Transmission Date: 20250716
  Serious: Yes (Death, Life-Threatening, Hospitalization, Other)
  Sender: AUROBINDO
  Company Number: US-MLMSERVICE-20220407-3488569-1

PATIENT
  Age: 48 Year
  Sex: Male

DRUGS (6)
  1. DEXAMETHASONE [Suspect]
     Active Substance: DEXAMETHASONE
     Indication: T-cell lymphoma
     Dosage: 20 MILLIGRAM, ONCE A DAY
     Route: 065
  2. DEXAMETHASONE [Suspect]
     Active Substance: DEXAMETHASONE
     Indication: Haemophagocytic lymphohistiocytosis
  3. DEXAMETHASONE [Suspect]
     Active Substance: DEXAMETHASONE
     Indication: Cytomegalovirus infection
  4. ETOPOSIDE [Suspect]
     Active Substance: ETOPOSIDE
     Indication: T-cell lymphoma
     Route: 065
  5. ETOPOSIDE [Suspect]
     Active Substance: ETOPOSIDE
     Indication: Haemophagocytic lymphohistiocytosis
  6. ETOPOSIDE [Suspect]
     Active Substance: ETOPOSIDE
     Indication: Cytomegalovirus infection

REACTIONS (8)
  - Hypocalcaemia [Fatal]
  - Hyperphosphataemia [Fatal]
  - Shock [Fatal]
  - Tumour lysis syndrome [Fatal]
  - Hyperuricaemia [Fatal]
  - Hyperkalaemia [Fatal]
  - Cardiac arrest [Recovered/Resolved]
  - Pulseless electrical activity [Recovered/Resolved]
